FAERS Safety Report 7432909-9 (Version None)
Quarter: 2011Q2

REPORT INFORMATION
  Report Type: 
  Country: None (occurrence: None)
  Receive Date: 20110422
  Receipt Date: 20110420
  Transmission Date: 20111010
  Serious: No
  Sender: FDA-Public Use
  Company Number: US-PFIZER INC-2011046893

PATIENT
  Sex: Male
  Weight: 106 kg

DRUGS (4)
  1. MULTI-VITAMINS [Concomitant]
     Dosage: 50 MG AM
  2. WELLBUTRIN [Suspect]
     Indication: DEPRESSION
     Dosage: 300 MG, 1X/DAY
     Route: 048
     Dates: end: 20100101
  3. PRISTIQ [Suspect]
     Indication: DEPRESSION
     Dosage: 100 MG, 1X/DAY
     Route: 048
     Dates: start: 20100101
  4. PRISTIQ [Suspect]
     Dosage: 50 MG, UNK
     Dates: start: 20100716

REACTIONS (4)
  - ARTHRALGIA [None]
  - HEADACHE [None]
  - PAIN IN EXTREMITY [None]
  - HYPOAESTHESIA [None]
